FAERS Safety Report 7984164-9 (Version None)
Quarter: 2011Q4

REPORT INFORMATION
  Report Type: 
  Country: None (occurrence: None)
  Receive Date: 20111214
  Receipt Date: 20111205
  Transmission Date: 20120403
  Serious: Yes (Other)
  Sender: FDA-Public Use
  Company Number: 2010JP006118

PATIENT
  Age: 13 Year
  Sex: Male

DRUGS (7)
  1. PROGRAF [Suspect]
     Indication: PROPHYLAXIS AGAINST GRAFT VERSUS HOST DISEASE
     Dosage: ORAL
     Route: 048
  2. FLUDARABINE PHOSPHATE [Concomitant]
  3. MELPHALAN HYDROCHLORIDE [Concomitant]
  4. PREDNISOLONE [Concomitant]
  5. PROGRAF [Suspect]
     Indication: PROPHYLAXIS AGAINST GRAFT VERSUS HOST DISEASE
     Dosage: 0.03 MG/KG,
     Dates: start: 20080312
  6. METHOTREXATE [Concomitant]
  7. ZETBULIN (ANTILYMPHOCYTE IMMUNOGLOBULIN (HORSE)) [Concomitant]

REACTIONS (3)
  - CHRONIC GRAFT VERSUS HOST DISEASE [None]
  - DRUG INEFFECTIVE [None]
  - HERPES ZOSTER [None]
